FAERS Safety Report 23441033 (Version 1)
Quarter: 2024Q1

REPORT INFORMATION
  Report Type: Spontaneous
  Country: ES (occurrence: ES)
  Receive Date: 20240125
  Receipt Date: 20240125
  Transmission Date: 20240410
  Serious: Yes (Hospitalization)
  Sender: FDA-Public Use
  Company Number: ES-AEMPS-1432158

PATIENT
  Age: 70 Year
  Sex: Male

DRUGS (3)
  1. CIPROFLOXACIN [Suspect]
     Active Substance: CIPROFLOXACIN
     Indication: Abdominal infection
     Dosage: 750.0 MG C/12 H
     Route: 048
     Dates: start: 20230223, end: 20230307
  2. RIFAMPIN [Suspect]
     Active Substance: RIFAMPIN
     Indication: Abdominal infection
     Dosage: 600.0 MG C/24 H
     Route: 048
     Dates: start: 20230215, end: 20230307
  3. ASPIRIN [Concomitant]
     Active Substance: ASPIRIN
     Indication: Arteriosclerosis
     Dosage: 100.0 MG DE
     Route: 048
     Dates: start: 20220708

REACTIONS (1)
  - Tubulointerstitial nephritis [Recovered/Resolved]

NARRATIVE: CASE EVENT DATE: 20230307
